FAERS Safety Report 18376523 (Version 1)
Quarter: 2020Q4

REPORT INFORMATION
  Report Type: Spontaneous
  Country: US (occurrence: US)
  Receive Date: 20201012
  Receipt Date: 20201012
  Transmission Date: 20210114
  Serious: Yes (Hospitalization)
  Sender: FDA-Public Use
  Company Number: None

PATIENT
  Age: 62 Year
  Sex: Male
  Weight: 100 kg

DRUGS (22)
  1. FOLIC ACID 1MG QD [Concomitant]
  2. MULTIPLE VITAMIN 1TAB QD [Concomitant]
  3. ONDANSETRON 8MG TID [Concomitant]
  4. PROCHLORPERAZINE 10MG QID [Concomitant]
  5. URSODIOL 300MG TID [Concomitant]
  6. CALCIUM-VITAMIN D 500-400MG QD [Concomitant]
  7. OLANZAPINE 10MG QHS [Concomitant]
  8. PANTOPRAZOLE 40MG QD [Concomitant]
  9. ERGOCALCIFEROL 1.25MG Q2W [Concomitant]
  10. MELPHALAN. [Suspect]
     Active Substance: MELPHALAN
  11. BUSULFAN. [Suspect]
     Active Substance: BUSULFAN
     Indication: PLASMA CELL MYELOMA
     Route: 041
     Dates: start: 20200826, end: 20200830
  12. LEVOTHYROXINE 125MCG QD [Concomitant]
  13. CARFILZOMIB [Suspect]
     Active Substance: CARFILZOMIB
     Indication: PLASMA CELL MYELOMA
     Route: 041
     Dates: start: 20200831, end: 20200901
  14. ACYCLOVIR 400MG BID [Concomitant]
  15. LISINOPRIL 20MG QD [Concomitant]
  16. NIFEDIPINE 30MG QD [Concomitant]
  17. FLUCONAZOLE 200MG QD [Concomitant]
  18. TRAMADOL 50MG Q6H PRN [Concomitant]
  19. HYDROCHLOROTHIAZIDE 25MG QD [Concomitant]
  20. LOPERAMIDE 2MG QID PRN [Concomitant]
  21. NYSTATIN 500000 UNIT QID [Concomitant]
  22. SULFAMETHOXAZOLE-TRIMETHOPRIM 800-160MG 3XW [Concomitant]

REACTIONS (21)
  - Colitis ischaemic [None]
  - Intra-abdominal fluid collection [None]
  - Metabolic acidosis [None]
  - Pneumatosis intestinalis [None]
  - Surgical procedure repeated [None]
  - Abscess intestinal [None]
  - Lung infiltration [None]
  - Splenic infarction [None]
  - Haematemesis [None]
  - Acute kidney injury [None]
  - Anastomotic complication [None]
  - Dehydration [None]
  - Gastrointestinal oedema [None]
  - Serositis [None]
  - Haemoglobin decreased [None]
  - Transfusion [None]
  - Atelectasis [None]
  - Gastrointestinal necrosis [None]
  - Ischaemic enteritis [None]
  - Haematuria [None]
  - Blood lactate dehydrogenase increased [None]

NARRATIVE: CASE EVENT DATE: 20200922
